FAERS Safety Report 6125778-0 (Version None)
Quarter: 2009Q1

REPORT INFORMATION
  Report Type: 
  Country: None (occurrence: None)
  Receive Date: 20090319
  Receipt Date: 20090319
  Transmission Date: 20090719
  Serious: Yes (Other)
  Sender: FDA-Public Use
  Company Number: None

PATIENT
  Sex: Male

DRUGS (1)
  1. RITUXAN [Suspect]
     Dosage: 750 MG/M2 = 1550 MG IV
     Route: 042
     Dates: start: 20090128, end: 20090128

REACTIONS (2)
  - ATRIAL FIBRILLATION [None]
  - DISTURBANCE IN ATTENTION [None]
